FAERS Safety Report 15793204 (Version 2)
Quarter: 2019Q1

REPORT INFORMATION
  Report Type: Spontaneous
  Country: US (occurrence: US)
  Receive Date: 20190107
  Receipt Date: 20190108
  Transmission Date: 20190417
  Serious: Yes (Other)
  Sender: FDA-Public Use
  Company Number: US-GLAXOSMITHKLINE-US2019000935

PATIENT
  Sex: Male

DRUGS (1)
  1. GAVISCON REGULAR STRENGTH LIQUID ORAL LIQUID (ALGINIC ACID) [Suspect]
     Active Substance: ALGINIC ACID\ALUMINUM HYDROXIDE\MAGNESIUM CARBONATE
     Indication: PRODUCT USED FOR UNKNOWN INDICATION
     Dosage: UNK

REACTIONS (3)
  - Expired product administered [Unknown]
  - Malaise [Unknown]
  - Haematemesis [Unknown]
